FAERS Safety Report 12961310 (Version 3)
Quarter: 2016Q4

REPORT INFORMATION
  Report Type: Spontaneous
  Country: FR (occurrence: FR)
  Receive Date: 20161121
  Receipt Date: 20161214
  Transmission Date: 20170207
  Serious: Yes (Death, Hospitalization, Other)
  Sender: FDA-Public Use
  Company Number: FR-PFIZER INC-2016522701

PATIENT
  Age: 67 Year
  Sex: Male

DRUGS (17)
  1. CYTOTEC [Concomitant]
     Active Substance: MISOPROSTOL
     Indication: MOUTH ULCERATION
  2. CYTOTEC [Concomitant]
     Active Substance: MISOPROSTOL
     Indication: GASTROINTESTINAL INJURY
  3. KEPPRA [Concomitant]
     Active Substance: LEVETIRACETAM
     Dosage: 1000 MG, 2X/DAY
     Dates: start: 20160919, end: 20160923
  4. SUTENT [Suspect]
     Active Substance: SUNITINIB MALATE
     Dosage: 50 MG, CYCLIC FOR 14 DAYS OF 21 DAYS CYCLE
     Route: 048
     Dates: start: 20160909, end: 20160918
  5. BICARBONATE [Concomitant]
     Active Substance: BICARBONATE ION
     Indication: MOUTH ULCERATION
  6. CYTOTEC [Concomitant]
     Active Substance: MISOPROSTOL
     Indication: STOMATITIS
     Dosage: UNK
  7. RIVOTRIL [Concomitant]
     Active Substance: CLONAZEPAM
     Dosage: 1 MG, UNK
     Dates: start: 20160921
  8. FLAGYL [Concomitant]
     Active Substance: METRONIDAZOLE\METRONIDAZOLE HYDROCHLORIDE
     Indication: LUNG DISORDER
     Dosage: 500 MG, SINGLE
     Route: 042
     Dates: start: 20160923, end: 20160923
  9. XENETIX [Suspect]
     Active Substance: IOBITRIDOL
     Indication: COMPUTERISED TOMOGRAM
     Dosage: 80 ML, SINGLE
     Route: 042
     Dates: start: 20160926, end: 20160926
  10. GENTAMICINE /00047101/ [Suspect]
     Active Substance: GENTAMICIN
     Indication: LUNG DISORDER
     Dosage: 160 MG, SINGLE
     Route: 042
     Dates: start: 20160923, end: 20160923
  11. BICARBONATE [Concomitant]
     Active Substance: BICARBONATE ION
     Indication: STOMATITIS
     Dosage: UNK
     Route: 048
  12. PHOSPHALUGEL /00488501/ [Concomitant]
     Dosage: UNK
  13. BICARBONATE [Concomitant]
     Active Substance: BICARBONATE ION
     Indication: GASTROINTESTINAL INJURY
  14. KEPPRA [Concomitant]
     Active Substance: LEVETIRACETAM
     Indication: SEIZURE
     Dosage: 500 MG, 2X/DAY
     Route: 048
     Dates: start: 20160918
  15. AUGMENTIN [Concomitant]
     Active Substance: AMOXICILLIN\CLAVULANATE POTASSIUM
     Indication: LUNG DISORDER
     Dosage: UNK
     Route: 042
     Dates: start: 20160923, end: 20160923
  16. SUTENT [Suspect]
     Active Substance: SUNITINIB MALATE
     Indication: RENAL CANCER METASTATIC
     Dosage: 50 MG, CYCLIC FOR 14 DAYS OF 21 DAYS CYCLE
     Route: 048
     Dates: start: 20160729, end: 20160825
  17. LASILIX /00032601/ [Concomitant]
     Active Substance: FUROSEMIDE
     Dosage: 60 MG, SINGLE
     Route: 042
     Dates: start: 20160923, end: 20160923

REACTIONS (11)
  - Cardiogenic shock [Unknown]
  - Acute kidney injury [Fatal]
  - Hypertension [Unknown]
  - Tachycardia [Unknown]
  - Aphasia [Unknown]
  - Coma [Unknown]
  - Urine output decreased [Unknown]
  - Acute respiratory distress syndrome [Unknown]
  - Pneumonia aspiration [Unknown]
  - Pyrexia [Unknown]
  - Status epilepticus [Unknown]

NARRATIVE: CASE EVENT DATE: 201609
